FAERS Safety Report 24130411 (Version 1)
Quarter: 2024Q3

REPORT INFORMATION
  Report Type: Report from Study
  Country: US (occurrence: US)
  Receive Date: 20240724
  Receipt Date: 20240724
  Transmission Date: 20241016
  Serious: Yes (Death, Other)
  Sender: pharmaAND
  Company Number: US-Pharmaand-2024000312

PATIENT
  Age: 67 Year
  Sex: Female

DRUGS (3)
  1. RUBRACA [Suspect]
     Active Substance: RUCAPARIB CAMSYLATE
     Indication: Ovarian cancer
     Dosage: 500 MG TWICE A DAY
     Route: 048
     Dates: start: 202106, end: 20220623
  2. RUBRACA [Suspect]
     Active Substance: RUCAPARIB CAMSYLATE
     Dosage: 200MG TWO TABLETS BID
     Route: 048
     Dates: start: 20230428, end: 20230720
  3. RUBRACA [Suspect]
     Active Substance: RUCAPARIB CAMSYLATE
     Dosage: 200MG TWO TABLETS BID
     Route: 048
     Dates: start: 20240201

REACTIONS (3)
  - Death [Fatal]
  - Leukaemia [Unknown]
  - Thrombocytopenia [Unknown]

NARRATIVE: CASE EVENT DATE: 20240518
